FAERS Safety Report 5076356-6 (Version None)
Quarter: 2006Q3

REPORT INFORMATION
  Report Type: 
  Country: None (occurrence: None)
  Receive Date: 20060807
  Receipt Date: 20060727
  Transmission Date: 20061208
  Serious: Yes (Hospitalization)
  Sender: FDA-Public Use
  Company Number: FRWYE380527JUL06

PATIENT
  Age: 77 Year
  Sex: Female

DRUGS (6)
  1. EFFEXOR XR [Suspect]
     Indication: ANXIETY
     Dosage: 112.5 MG TOTAL DAILY ORAL
     Route: 048
     Dates: start: 20060714, end: 20060726
  2. CLARITHROMYCIN [Concomitant]
  3. ETHAMBUTOL             (ETHAMBUTOL) [Concomitant]
  4. RFAMPICIN        (RIFAMPICIN) [Concomitant]
  5. XANAX [Concomitant]
  6. ................. [Concomitant]

REACTIONS (7)
  - CARDIAC TAMPONADE [None]
  - CEREBRAL ISCHAEMIA [None]
  - CONDITION AGGRAVATED [None]
  - PARTIAL SEIZURES WITH SECONDARY GENERALISATION [None]
  - PERICARDIAL EFFUSION [None]
  - SENSATION OF HEAVINESS [None]
  - SYSTEMIC SCLEROSIS [None]
